FAERS Safety Report 17889775 (Version 1)
Quarter: 2020Q2

REPORT INFORMATION
  Report Type: Spontaneous
  Country: US (occurrence: US)
  Receive Date: 20200612
  Receipt Date: 20200612
  Transmission Date: 20200714
  Serious: Yes (Life-Threatening)
  Sender: FDA-Public Use
  Company Number: None

PATIENT
  Age: 62 Year
  Sex: Male
  Weight: 79 kg

DRUGS (1)
  1. PIPERACILLIN/TAZOBACTAM (PIPERACILLIN NA 3GM/TAZOBACTAM 0.375GM/50ML I [Suspect]
     Active Substance: PIPERACILLIN SODIUM\TAZOBACTAM SODIUM
     Indication: UMBILICAL HERNIA
     Route: 042
     Dates: start: 20200610, end: 20200610

REACTIONS (10)
  - Anaphylactic reaction [None]
  - Pallor [None]
  - Tachycardia [None]
  - Headache [None]
  - Urticaria [None]
  - Pruritus [None]
  - Rash [None]
  - Stridor [None]
  - Dyspnoea [None]
  - Hypertension [None]

NARRATIVE: CASE EVENT DATE: 20200610
